FAERS Safety Report 9194677 (Version 1)
Quarter: 2013Q1

REPORT INFORMATION
  Report Type: Spontaneous
  Country: US (occurrence: US)
  Receive Date: 20130327
  Receipt Date: 20130327
  Transmission Date: 20140127
  Serious: No
  Sender: FDA-Public Use
  Company Number: US-ALLERGAN-1207555US

PATIENT
  Sex: Female

DRUGS (6)
  1. LATISSE 0.03% [Suspect]
     Indication: GROWTH OF EYELASHES
     Dosage: 2 GTT, QHS
     Route: 061
     Dates: start: 201204, end: 201205
  2. ASACOL [Concomitant]
     Indication: COLITIS
     Dosage: UNK
  3. SERREX [Concomitant]
     Indication: PRODUCT USED FOR UNKNOWN INDICATION
     Dosage: UNK
  4. HYDROXYZINE [Concomitant]
     Indication: ANXIETY
     Dosage: UNK
  5. TRAZODONE [Concomitant]
     Indication: PRODUCT USED FOR UNKNOWN INDICATION
     Dosage: UNK
  6. DISLORASONE [Concomitant]
     Indication: PRODUCT USED FOR UNKNOWN INDICATION
     Dosage: UNK

REACTIONS (5)
  - Eyelids pruritus [Recovered/Resolved]
  - Eyelid oedema [Recovered/Resolved]
  - Erythema of eyelid [Recovered/Resolved]
  - Eyelid irritation [Recovered/Resolved]
  - Lacrimation increased [Recovered/Resolved]
